FAERS Safety Report 10143951 (Version 1)
Quarter: 2014Q2

REPORT INFORMATION
  Report Type: Spontaneous
  Country: AT (occurrence: AT)
  Receive Date: 20140430
  Receipt Date: 20140430
  Transmission Date: 20141212
  Serious: Yes (Hospitalization)
  Sender: FDA-Public Use
  Company Number: AT-JNJFOC-20140418793

PATIENT
  Age: 37 Year
  Sex: Female
  Weight: 62 kg

DRUGS (4)
  1. SIMPONI [Suspect]
     Indication: RHEUMATOID ARTHRITIS
     Route: 058
     Dates: start: 2014, end: 20140424
  2. ISONICOTINYLHYDRAZINE [Concomitant]
     Route: 048
  3. METHOTREXATE [Concomitant]
     Route: 048
  4. CORTISONE [Concomitant]
     Route: 048

REACTIONS (3)
  - Abscess limb [Unknown]
  - Osteomyelitis [Unknown]
  - Mycobacterium tuberculosis complex test positive [Unknown]
